FAERS Safety Report 20632158 (Version 2)
Quarter: 2022Q2

REPORT INFORMATION
  Report Type: Spontaneous
  Country: AT (occurrence: AT)
  Receive Date: 20220324
  Receipt Date: 20220405
  Transmission Date: 20220721
  Serious: Yes (Other)
  Sender: FDA-Public Use
  Company Number: AT-NOVARTISPH-NVSC2022AT063004

PATIENT
  Sex: Male

DRUGS (14)
  1. OCTREOTIDE ACETATE [Suspect]
     Active Substance: OCTREOTIDE ACETATE
     Indication: Phaeochromocytoma
     Dosage: 30 MG, QMO (EVERY 4 WEEKS)
     Route: 065
     Dates: start: 201901, end: 201910
  2. OCTREOTIDE ACETATE [Suspect]
     Active Substance: OCTREOTIDE ACETATE
  3. OCTREOTIDE ACETATE [Suspect]
     Active Substance: OCTREOTIDE ACETATE
  4. CYCLOPHOSPHAMIDE [Suspect]
     Active Substance: CYCLOPHOSPHAMIDE
     Indication: Phaeochromocytoma
     Dosage: UNK UNK, Q3W
     Route: 065
     Dates: start: 20191025, end: 20191121
  5. ALECTINIB [Concomitant]
     Active Substance: ALECTINIB
     Indication: Phaeochromocytoma
     Dosage: UNK
     Route: 065
     Dates: start: 201905
  6. VINCRISTINE [Concomitant]
     Active Substance: VINCRISTINE
     Indication: Phaeochromocytoma
     Dosage: UNK UNK, Q3W
     Route: 065
     Dates: start: 20191025, end: 20191121
  7. DACARBAZINE [Concomitant]
     Active Substance: DACARBAZINE
     Indication: Phaeochromocytoma
     Dosage: UNK UNK, Q3W
     Route: 065
     Dates: start: 20191025, end: 20191121
  8. BISOPROLOL FUMARATE [Concomitant]
     Active Substance: BISOPROLOL FUMARATE
     Indication: Product used for unknown indication
     Dosage: 5 MG IN THE EVENING ?
     Route: 065
  9. OLEOVIT [Concomitant]
     Indication: Product used for unknown indication
     Dosage: UNK (3 DROPS PER DAY IN THE MORNING)
     Route: 065
  10. XGEVA [Concomitant]
     Active Substance: DENOSUMAB
     Indication: Product used for unknown indication
     Dosage: 1200 MG (EVERY 6 WEEKS BY THE GENERAL PRACTITIONER)
     Route: 058
  11. DOXAZOSIN [Concomitant]
     Active Substance: DOXAZOSIN MESYLATE
     Indication: Product used for unknown indication
     Dosage: UNK (4 MG RET. IN THE EVENING 1)
     Route: 065
  12. DOXAZOSIN [Concomitant]
     Active Substance: DOXAZOSIN MESYLATE
     Dosage: 4MG RET. AT RR SYST. GREATER THAN 160MG MMHG
     Route: 065
  13. XYZAL [Concomitant]
     Active Substance: LEVOCETIRIZINE DIHYDROCHLORIDE
     Indication: Pruritus
     Dosage: 5 MG (FIRST 4 TO 8 WEEKS IN THE EVENING 1)
     Route: 065
  14. ENTEROBENE [Concomitant]
     Indication: Diarrhoea
     Dosage: 2 MG (UP TO 6X DAILY )
     Route: 065

REACTIONS (6)
  - Phaeochromocytoma [Unknown]
  - Metastases to bone [Unknown]
  - Metastases to lymph nodes [Unknown]
  - Malignant neoplasm progression [Unknown]
  - Metastases to liver [Unknown]
  - Gilbert^s syndrome [Unknown]

NARRATIVE: CASE EVENT DATE: 20190601
